FAERS Safety Report 6761114-4 (Version None)
Quarter: 2010Q2

REPORT INFORMATION
  Report Type: 
  Country: None (occurrence: None)
  Receive Date: 20100604
  Receipt Date: 20100525
  Transmission Date: 20101027
  Serious: Yes (Hospitalization)
  Sender: FDA-Public Use
  Company Number: 2009AC000274

PATIENT
  Age: 35 Year
  Sex: Male

DRUGS (14)
  1. DIGOXIN [Suspect]
     Dosage: .25 MG;QD;PO
     Route: 048
     Dates: start: 20071201
  2. DIGOXIN [Suspect]
     Dosage: .250 MG;QD;PO
     Route: 048
     Dates: start: 20071001
  3. NEURONTIN [Concomitant]
  4. METFORMIN [Concomitant]
  5. COREG [Concomitant]
  6. LISINOPRIL [Concomitant]
  7. LYRICA [Concomitant]
  8. FLEXRIL [Concomitant]
  9. NAPROSYN [Concomitant]
  10. PRILOSEC [Concomitant]
  11. LASIX [Concomitant]
  12. KEFLEX [Concomitant]
  13. FLONASE [Concomitant]
  14. LOVENOX [Concomitant]

REACTIONS (31)
  - ABDOMINAL PAIN UPPER [None]
  - ACUTE SINUSITIS [None]
  - ANXIETY [None]
  - BACK PAIN [None]
  - BRONCHITIS [None]
  - CARDIAC FAILURE CONGESTIVE [None]
  - CATHETER SITE SWELLING [None]
  - CHEST DISCOMFORT [None]
  - CONGESTIVE CARDIOMYOPATHY [None]
  - DIARRHOEA [None]
  - DILATATION VENTRICULAR [None]
  - DIVERTICULUM [None]
  - DYSPEPSIA [None]
  - EAR DISCOMFORT [None]
  - EMOTIONAL DISTRESS [None]
  - FACIAL PAIN [None]
  - FLANK PAIN [None]
  - HAEMORRHOIDS [None]
  - HEPATIC STEATOSIS [None]
  - HYPERGLYCAEMIA [None]
  - LEFT VENTRICULAR HYPERTROPHY [None]
  - MITRAL VALVE INCOMPETENCE [None]
  - MULTIPLE INJURIES [None]
  - MUSCULOSKELETAL CHEST PAIN [None]
  - NASAL CONGESTION [None]
  - NAUSEA [None]
  - PAIN [None]
  - PROTHROMBIN TIME SHORTENED [None]
  - PULMONARY VALVE INCOMPETENCE [None]
  - UNEVALUABLE EVENT [None]
  - WEIGHT DECREASED [None]
